FAERS Safety Report 4480716-1 (Version None)
Quarter: 2004Q4

REPORT INFORMATION
  Report Type: 
  Country: None (occurrence: None)
  Receive Date: 20041018
  Receipt Date: 20041007
  Transmission Date: 20050328
  Serious: Yes (Death)
  Sender: FDA-Public Use
  Company Number: MK200410-0138-1

PATIENT
  Age: 70 Year
  Sex: Female

DRUGS (3)
  1. TOFRANIL TAB [Suspect]
     Indication: ANXIETY
     Dosage: 30 MG DAILY
     Dates: start: 20040420, end: 20040425
  2. RINDERON [Suspect]
     Dosage: 2MG DAILY
     Dates: start: 20040419
  3. CERCINE [Suspect]
     Dosage: 6MG DAILY
     Dates: start: 20040414

REACTIONS (6)
  - AKATHISIA [None]
  - ANAEMIA [None]
  - ANXIETY [None]
  - DYSPNOEA [None]
  - EXTRAPYRAMIDAL DISORDER [None]
  - METASTASIS [None]
